FAERS Safety Report 9008915 (Version 2)
Quarter: 2013Q1

REPORT INFORMATION
  Report Type: Spontaneous
  Country: US (occurrence: US)
  Receive Date: 20130111
  Receipt Date: 20130313
  Transmission Date: 20140127
  Serious: Yes (Life-Threatening, Hospitalization, Disabling, Other)
  Sender: FDA-Public Use
  Company Number: US-009507513-1301USA001593

PATIENT
  Age: 78 Year
  Sex: Female

DRUGS (30)
  1. SINGULAIR [Suspect]
     Indication: ASTHMA
     Dosage: 10 MG, QD 050
  2. SINGULAIR [Suspect]
     Indication: HYPERTENSION
  3. SINGULAIR [Suspect]
     Indication: SHOCK
  4. OLMETEC [Suspect]
     Dosage: 20 MG, BID 050
  5. PRODIF [Suspect]
     Dosage: 252.3 MG, UNKNOWN
     Route: 042
  6. CATABON [Suspect]
     Dosage: 10MG/ML Q1HR IV
     Route: 042
  7. ALEVIATIN [Concomitant]
  8. DIFLUCAN [Concomitant]
  9. PENTCILLIN [Concomitant]
  10. LASIX (FUROSEMIDE) [Concomitant]
  11. ISEPACIN [Concomitant]
  12. AMICALIQ [Concomitant]
  13. NEOPAREN [Concomitant]
  14. BUFFERIN [Concomitant]
  15. ZONISAMIDE [Concomitant]
  16. NEOPHYLLIN (AMINOPHYLLINE) [Concomitant]
  17. LAC-B [Concomitant]
  18. ELEMENMIC [Concomitant]
  19. DEPAKENE [Concomitant]
  20. GASTER (CROMOLYN SODIUM) [Concomitant]
  21. TEGRETOL [Concomitant]
  22. MAGNESIUM OXIDE [Concomitant]
  23. SYMMETREL [Concomitant]
  24. FRANDOL [Concomitant]
  25. CRAVIT [Concomitant]
  26. LACTEC G [Concomitant]
  27. NEOLAMIN 3B INTRAVENOUS [Concomitant]
  28. ASCORBIC ACID [Concomitant]
  29. VEEN 3G [Concomitant]
  30. MUCODYNE [Concomitant]

REACTIONS (15)
  - Vomiting [Unknown]
  - Shock [Unknown]
  - Respiratory moniliasis [Unknown]
  - Pyrexia [Unknown]
  - Productive cough [Unknown]
  - Pneumonia bacterial [Unknown]
  - Mental impairment [Unknown]
  - Inflammation [Unknown]
  - Hypoventilation [Unknown]
  - Epilepsy [Unknown]
  - Cardio-respiratory arrest [Unknown]
  - Bradyarrhythmia [Unknown]
  - Blood pressure systolic increased [Unknown]
  - Atrioventricular block [Unknown]
  - Asthma [Unknown]
